FAERS Safety Report 8269896-X (Version None)
Quarter: 2012Q2

REPORT INFORMATION
  Report Type: 
  Country: None (occurrence: None)
  Receive Date: 20120410
  Receipt Date: 20120327
  Transmission Date: 20120825
  Serious: No
  Sender: FDA-Public Use
  Company Number: US-PFIZER INC-2011054675

PATIENT
  Sex: Male
  Weight: 123 kg

DRUGS (1)
  1. PROTONIX [Suspect]
     Indication: GASTRITIS
     Dosage: 40 MG, 2X/DAY
     Route: 048
     Dates: start: 20010101, end: 20110101

REACTIONS (1)
  - ULCER [None]
